FAERS Safety Report 8177481-3 (Version None)
Quarter: 2012Q1

REPORT INFORMATION
  Report Type: 
  Country: None (occurrence: None)
  Receive Date: 20120301
  Receipt Date: 20120221
  Transmission Date: 20120608
  Serious: Yes (Other)
  Sender: FDA-Public Use
  Company Number: US-JNJFOC-20110301709

PATIENT
  Sex: Female
  Weight: 117.03 kg

DRUGS (12)
  1. NEXIUM [Concomitant]
     Route: 065
  2. BENADRYL [Concomitant]
     Indication: PREMEDICATION
  3. ACTOPLUS MET [Concomitant]
     Route: 065
  4. VENTOLIN [Concomitant]
     Route: 065
  5. VICODIN [Concomitant]
     Route: 065
  6. NITROLINGUAL [Concomitant]
     Route: 065
  7. REMICADE [Suspect]
     Indication: RHEUMATOID ARTHRITIS
     Route: 042
  8. METHOTREXATE [Concomitant]
     Route: 065
  9. VITAMIN B-12 [Concomitant]
     Route: 065
  10. REMICADE [Suspect]
     Route: 042
     Dates: start: 20110228
  11. REMICADE [Suspect]
     Route: 042
     Dates: start: 20071113
  12. ESTROVEN [Concomitant]
     Route: 065

REACTIONS (5)
  - AORTIC ARTERIOSCLEROSIS [None]
  - CHEST PAIN [None]
  - INFUSION RELATED REACTION [None]
  - MYOCARDIAL ISCHAEMIA [None]
  - MITRAL VALVE INCOMPETENCE [None]
